FAERS Safety Report 11623395 (Version 1)
Quarter: 2015Q4

REPORT INFORMATION
  Report Type: Spontaneous
  Country: US (occurrence: US)
  Receive Date: 20151013
  Receipt Date: 20151013
  Transmission Date: 20160304
  Serious: No
  Sender: FDA-Public Use
  Company Number: US-JNJFOC-20150322594

PATIENT
  Age: 40 Year
  Sex: Female

DRUGS (3)
  1. TYLENOL EXTRA STRENGTH [Suspect]
     Active Substance: ACETAMINOPHEN
     Indication: SUICIDE ATTEMPT
     Dosage: STRENGHT: 500 MG, 2 TABLET ONCE
     Route: 048
     Dates: start: 20150325
  2. ACETAMINOPHEN. [Suspect]
     Active Substance: ACETAMINOPHEN
     Route: 048
  3. ACETAMINOPHEN. [Suspect]
     Active Substance: ACETAMINOPHEN
     Indication: SUICIDE ATTEMPT
     Dosage: STRENGTH: 500 MG, 8-10 GENERIC TABLETS OVER 5 HOURS
     Route: 048
     Dates: start: 20150325

REACTIONS (3)
  - Intentional overdose [Unknown]
  - Product use issue [Unknown]
  - Drug administration error [Unknown]

NARRATIVE: CASE EVENT DATE: 20150325
